FAERS Safety Report 8807147 (Version 2)
Quarter: 2012Q4

REPORT INFORMATION
  Report Type: 
  Country: US (occurrence: US)
  Receive Date: 20120925
  Receipt Date: 20121107
  Transmission Date: 20130627
  Serious: Yes (Hospitalization, Other)
  Sender: FDA-Public Use
  Company Number: US-ARROW-2012-14834

PATIENT
  Age: 45 None
  Sex: Male
  Weight: 107 kg

DRUGS (3)
  1. FENTANYL [Suspect]
     Indication: PAIN
     Dosage: 1 patch every 72 hrs
     Route: 062
     Dates: start: 201208, end: 20120827
  2. FENTANYL [Suspect]
     Dosage: 1 patch every 72 hrs
     Route: 062
     Dates: start: 2012, end: 20120820
  3. FENTANYL [Suspect]
     Dosage: 1 patch every 72 hrs
     Route: 062
     Dates: start: 2011, end: 2012

REACTIONS (20)
  - Gastrointestinal inflammation [Not Recovered/Not Resolved]
  - Narcotic bowel syndrome [Unknown]
  - Poisoning [Unknown]
  - Rectal haemorrhage [Not Recovered/Not Resolved]
  - Mental status changes [Unknown]
  - Overdose [Unknown]
  - Constipation [Recovered/Resolved]
  - Dizziness [Not Recovered/Not Resolved]
  - Disorientation [Not Recovered/Not Resolved]
  - Haemorrhoids [Unknown]
  - Application site pruritus [Not Recovered/Not Resolved]
  - Application site erythema [Not Recovered/Not Resolved]
  - Somnolence [Not Recovered/Not Resolved]
  - Confusional state [Not Recovered/Not Resolved]
  - Dyspnoea [Not Recovered/Not Resolved]
  - Syncope [Not Recovered/Not Resolved]
  - Hyperhidrosis [Not Recovered/Not Resolved]
  - Pruritus generalised [Not Recovered/Not Resolved]
  - Generalised erythema [Not Recovered/Not Resolved]
  - Dysuria [Not Recovered/Not Resolved]
